FAERS Safety Report 17052687 (Version 2)
Quarter: 2019Q4

REPORT INFORMATION
  Report Type: Report from Study
  Country: JP (occurrence: JP)
  Receive Date: 20191120
  Receipt Date: 20191205
  Transmission Date: 20200122
  Serious: Yes (Other)
  Sender: FDA-Public Use
  Company Number: JP-BAYER-2019-203952

PATIENT
  Age: 70 Year
  Sex: Male
  Weight: 85 kg

DRUGS (60)
  1. RITUXIMAB. [Suspect]
     Active Substance: RITUXIMAB
     Indication: B-CELL LYMPHOMA RECURRENT
     Dosage: DAILY DOSE 790 ML
     Route: 042
     Dates: start: 20190821, end: 20190821
  2. BENDAMUSTINE [Suspect]
     Active Substance: BENDAMUSTINE
     Indication: B-CELL LYMPHOMA RECURRENT
     Dosage: DAILY DOSE 790 MG
     Route: 042
     Dates: start: 20191022, end: 20191022
  3. POLARAMINE [Concomitant]
     Active Substance: DEXCHLORPHENIRAMINE MALEATE
     Indication: PROPHYLAXIS
     Dosage: 2 MG, QD
     Route: 048
     Dates: start: 20191021, end: 20191021
  4. CALONAL [Concomitant]
     Active Substance: ACETAMINOPHEN
     Indication: PROPHYLAXIS
     Dosage: 400 MG, QD
     Route: 048
     Dates: start: 20191021, end: 20191021
  5. ALOXI [Concomitant]
     Active Substance: PALONOSETRON HYDROCHLORIDE
     Indication: PROPHYLAXIS OF NAUSEA AND VOMITING
     Dosage: 0.75 MG, QD
     Route: 042
     Dates: start: 20160821
  6. DEXART [Concomitant]
     Active Substance: DEXAMETHASONE SODIUM PHOSPHATE
     Indication: PROPHYLAXIS
     Dosage: 6.6 MG, QD
     Route: 042
     Dates: start: 20190821, end: 20190822
  7. DERMOSOL G [Concomitant]
     Indication: PHLEBITIS
     Dosage: PROPER QUANTITY AS IN NEED, PRN
     Route: 061
     Dates: start: 20190823
  8. MAGNESIUM OXIDE. [Concomitant]
     Active Substance: MAGNESIUM OXIDE
     Indication: CONSTIPATION
     Dosage: 500 MG, PRN
     Route: 048
     Dates: start: 20190919
  9. JANUVIA [Concomitant]
     Active Substance: SITAGLIPTIN PHOSPHATE
     Indication: HYPERGLYCAEMIA
     Dosage: 100 MG, QD, 4 TIMES PER WEEK
     Route: 048
     Dates: start: 20190918, end: 20190921
  10. JANUVIA [Concomitant]
     Active Substance: SITAGLIPTIN PHOSPHATE
     Indication: HYPERGLYCAEMIA
     Dosage: 50 MG, QD
     Route: 048
     Dates: start: 20190925
  11. DERTOPICA [Concomitant]
     Indication: URTICARIA
     Dosage: 1 OTHER (APPLICATION), PRN
     Route: 061
     Dates: start: 20190921
  12. BENDAMUSTINE [Suspect]
     Active Substance: BENDAMUSTINE
     Indication: B-CELL LYMPHOMA RECURRENT
     Dosage: DAILY DOSE 790 MG
     Route: 042
     Dates: start: 20191021, end: 20191021
  13. ENALAPRIL MALEATE. [Concomitant]
     Active Substance: ENALAPRIL MALEATE
     Indication: HYPERTENSION
     Dosage: 2.5 MG, QD
     Route: 048
     Dates: start: 2014
  14. ALOXI [Concomitant]
     Active Substance: PALONOSETRON HYDROCHLORIDE
     Indication: PROPHYLAXIS OF NAUSEA AND VOMITING
     Dosage: 0.75 MG, QD
     Route: 042
     Dates: start: 20160918, end: 20190918
  15. ISOTONIC SODIUM CHLORIDE SOLUTION [Concomitant]
     Active Substance: SODIUM CHLORIDE
     Indication: PROPHYLAXIS
     Dosage: 500 ML, QD
     Route: 042
     Dates: start: 20190822, end: 20190822
  16. BESOFTEN [Concomitant]
     Active Substance: PENTOSAN POLYSULFATE SODIUM
     Indication: URTICARIA
     Dosage: 1 OTHER (APPLICATION), PRN
     Route: 061
     Dates: start: 20190919, end: 20190924
  17. HYDROXYZINE PAMOATE. [Concomitant]
     Active Substance: HYDROXYZINE PAMOATE
     Indication: URTICARIA
     Dosage: 25 MG, PRN
     Route: 048
     Dates: start: 20190921
  18. COPANLISIB. [Suspect]
     Active Substance: COPANLISIB
     Indication: B-CELL LYMPHOMA RECURRENT
     Dosage: DAILY DOSE 104 ML
     Route: 042
     Dates: start: 20190918, end: 20190918
  19. COPANLISIB. [Suspect]
     Active Substance: COPANLISIB
     Indication: B-CELL LYMPHOMA RECURRENT
     Dosage: DAILY DOSE 103 ML
     Route: 042
     Dates: start: 20191021, end: 20191021
  20. COPANLISIB. [Suspect]
     Active Substance: COPANLISIB
     Indication: B-CELL LYMPHOMA RECURRENT
     Dosage: DAILY DOSE 103 ML
     Route: 042
     Dates: start: 20191028, end: 20191028
  21. BAYASPIRIN 100 MG [Concomitant]
     Active Substance: ASPIRIN
     Indication: MYOCARDIAL INFARCTION
     Dosage: 100 MG, QD
     Route: 048
     Dates: start: 2014
  22. ATORVASTATIN [Concomitant]
     Active Substance: ATORVASTATIN
     Indication: HYPERLIPIDAEMIA
     Dosage: 10 MG, QD
     Route: 048
     Dates: start: 2014
  23. POLARAMINE [Concomitant]
     Active Substance: DEXCHLORPHENIRAMINE MALEATE
     Indication: PROPHYLAXIS
     Dosage: 2 MG, PRN
     Route: 048
     Dates: start: 20190921
  24. DEXART [Concomitant]
     Active Substance: DEXAMETHASONE SODIUM PHOSPHATE
     Indication: PROPHYLAXIS OF NAUSEA AND VOMITING
     Dosage: 6.6 MG, QD
     Route: 042
     Dates: start: 20190918, end: 20190919
  25. DEXART [Concomitant]
     Active Substance: DEXAMETHASONE SODIUM PHOSPHATE
     Indication: PROPHYLAXIS
     Dosage: 6.6 MG, QD
     Route: 042
     Dates: start: 20191021, end: 20191022
  26. DERMOSOL G [Concomitant]
     Indication: URTICARIA
     Dosage: PROPER QUANTITY AS IN NEED
     Route: 061
     Dates: start: 20190917, end: 20190924
  27. COPANLISIB. [Suspect]
     Active Substance: COPANLISIB
     Indication: B-CELL LYMPHOMA RECURRENT
     Dosage: DAILY DOSE 104 ML
     Route: 042
     Dates: start: 20190821, end: 20190821
  28. COPANLISIB. [Suspect]
     Active Substance: COPANLISIB
     Indication: B-CELL LYMPHOMA RECURRENT
     Dosage: DAILY DOSE 104 ML
     Route: 042
     Dates: start: 20190828, end: 20190828
  29. URIEF [Concomitant]
     Active Substance: SILODOSIN
     Indication: BENIGN PROSTATIC HYPERPLASIA
     Dosage: 2 MG, QD
     Route: 048
     Dates: start: 20190222, end: 201906
  30. POLARAMINE [Concomitant]
     Active Substance: DEXCHLORPHENIRAMINE MALEATE
     Indication: URTICARIA
     Dosage: 2 MG, QD
     Route: 048
     Dates: start: 20190918, end: 20190918
  31. CALONAL [Concomitant]
     Active Substance: ACETAMINOPHEN
     Indication: PROPHYLAXIS
     Dosage: 400 MG, QD
     Route: 048
     Dates: start: 20190918, end: 20190918
  32. ALOXI [Concomitant]
     Active Substance: PALONOSETRON HYDROCHLORIDE
     Indication: PROPHYLAXIS OF NAUSEA AND VOMITING
     Dosage: 0.75 ?G, QD
     Route: 042
     Dates: start: 20191021, end: 20191021
  33. DEXART [Concomitant]
     Active Substance: DEXAMETHASONE SODIUM PHOSPHATE
     Indication: PROPHYLAXIS
     Dosage: 6.6 MG, QD
     Route: 042
     Dates: start: 20191026
  34. FEXOFENADINE HYDROCHLORIDE. [Concomitant]
     Active Substance: FEXOFENADINE HYDROCHLORIDE
     Indication: URTICARIA
     Dosage: 60 MG, BID
     Route: 048
     Dates: start: 20190917, end: 20190925
  35. BETAMETHASONE. [Concomitant]
     Active Substance: BETAMETHASONE
     Indication: ERYTHEMA MULTIFORME
     Dosage: 0.5 MG, BID
     Route: 048
     Dates: start: 20191001, end: 20191005
  36. RITUXIMAB. [Suspect]
     Active Substance: RITUXIMAB
     Indication: B-CELL LYMPHOMA RECURRENT
     Dosage: DAILY DOSE 790 MG
     Route: 042
     Dates: start: 20190919, end: 20190919
  37. POLARAMINE [Concomitant]
     Active Substance: DEXCHLORPHENIRAMINE MALEATE
     Indication: PROPHYLAXIS
     Dosage: 2 MG, QD
     Route: 048
     Dates: start: 20190821, end: 20190821
  38. NIFEDIPINE. [Concomitant]
     Active Substance: NIFEDIPINE
     Indication: HYPERTENSION
     Dosage: 10 MG, PRN
     Route: 048
     Dates: start: 20190821, end: 20190821
  39. SILODOSIN. [Concomitant]
     Active Substance: SILODOSIN
     Indication: BENIGN PROSTATIC HYPERPLASIA
     Dosage: 2 MG, QD
     Route: 048
     Dates: start: 201906
  40. ISOTONIC SODIUM CHLORIDE SOLUTION [Concomitant]
     Active Substance: SODIUM CHLORIDE
     Indication: PROPHYLAXIS
     Dosage: 250 ML, QD
     Route: 042
     Dates: start: 20190821, end: 20190822
  41. JANUVIA [Concomitant]
     Active Substance: SITAGLIPTIN PHOSPHATE
     Indication: HYPERGLYCAEMIA
     Dosage: 50 MG, 4IW
     Route: 048
     Dates: start: 20190829, end: 20190907
  42. BETAMETHASONE. [Concomitant]
     Active Substance: BETAMETHASONE
     Indication: ERYTHEMA MULTIFORME
     Dosage: 0.5 MG, BID
     Route: 048
     Dates: start: 20191017
  43. DERTOPICA [Concomitant]
     Indication: ERYTHEMA MULTIFORME
     Dosage: 1 OTHER (APPLICATION), PRN
     Route: 061
     Dates: start: 20191016
  44. COPANLISIB. [Suspect]
     Active Substance: COPANLISIB
     Indication: B-CELL LYMPHOMA RECURRENT
     Dosage: DAILY DOSE 104 ML
     Route: 042
     Dates: start: 20190904, end: 20190904
  45. BENDAMUSTINE [Suspect]
     Active Substance: BENDAMUSTINE
     Indication: B-CELL LYMPHOMA RECURRENT
     Dosage: DAILY DOSE 250 ML
     Route: 042
     Dates: start: 20190821, end: 20190821
  46. CALONAL [Concomitant]
     Active Substance: ACETAMINOPHEN
     Indication: PROPHYLAXIS
     Dosage: 400 MG, QD
     Route: 048
     Dates: start: 20191026, end: 20191026
  47. TERPERAN [Concomitant]
     Active Substance: METOCLOPRAMIDE HYDROCHLORIDE
     Indication: NAUSEA
     Dosage: 5 MG, PRN
     Route: 048
     Dates: start: 20190825, end: 20190825
  48. MAGNESIUM OXIDE. [Concomitant]
     Active Substance: MAGNESIUM OXIDE
     Indication: CONSTIPATION
     Dosage: 500 MG, PRN
     Route: 048
     Dates: start: 20190827, end: 20190827
  49. BETAMETHASONE. [Concomitant]
     Active Substance: BETAMETHASONE
     Indication: ERYTHEMA MULTIFORME
     Dosage: 1 MG, BID
     Route: 048
     Dates: start: 20190925, end: 20190930
  50. BETAMETHASONE. [Concomitant]
     Active Substance: BETAMETHASONE
     Indication: ERYTHEMA MULTIFORME
     Dosage: 0.5 MG, QD
     Route: 048
     Dates: start: 20191006, end: 20191016
  51. CALONAL [Concomitant]
     Active Substance: ACETAMINOPHEN
     Indication: PROPHYLAXIS
     Dosage: 400 MG, QD
     Route: 048
     Dates: start: 20190821, end: 20190821
  52. DAIPHEN [Concomitant]
     Active Substance: SULFAMETHOXAZOLE\TRIMETHOPRIM
     Indication: INFECTION PROPHYLAXIS
     Dosage: 80 MG, QD
     Route: 048
     Dates: start: 20190822
  53. ACICLOVIR [Concomitant]
     Active Substance: ACYCLOVIR
     Indication: INFECTION PROPHYLAXIS
     Dosage: 200 MG, BID
     Route: 048
     Dates: start: 20190822
  54. INSULIN HUMAN [Concomitant]
     Active Substance: INSULIN HUMAN
     Indication: HYPERGLYCAEMIA
     Dosage: 2 UNIT PRN
     Route: 058
     Dates: start: 20190822
  55. LOCOID [Concomitant]
     Active Substance: HYDROCORTISONE BUTYRATE
     Indication: ERYTHEMA MULTIFORME
     Dosage: 1 OTHER (APPLICATION), PRN
     Route: 061
     Dates: start: 20190925
  56. RITUXIMAB. [Suspect]
     Active Substance: RITUXIMAB
     Indication: B-CELL LYMPHOMA RECURRENT
     Dosage: DAILY DOSE 250 ML
     Route: 042
     Dates: start: 20191021, end: 20191021
  57. BENDAMUSTINE [Suspect]
     Active Substance: BENDAMUSTINE
     Indication: B-CELL LYMPHOMA RECURRENT
     Dosage: DAILY DOSE 250 ML
     Route: 042
     Dates: start: 20190919, end: 20190919
  58. LANSOPRAZOLE. [Concomitant]
     Active Substance: LANSOPRAZOLE
     Indication: GASTROOESOPHAGEAL REFLUX PROPHYLAXIS
     Dosage: 15 MG, QD
     Route: 048
     Dates: start: 2014
  59. POLARAMINE [Concomitant]
     Active Substance: DEXCHLORPHENIRAMINE MALEATE
     Indication: PROPHYLAXIS
     Dosage: 2 MG, QD
     Route: 048
     Dates: start: 20191026, end: 20191026
  60. ALOXI [Concomitant]
     Active Substance: PALONOSETRON HYDROCHLORIDE
     Indication: PROPHYLAXIS OF NAUSEA AND VOMITING
     Dosage: 0.75 ?G, QD
     Route: 042
     Dates: start: 20191026, end: 20191026

REACTIONS (1)
  - Liver disorder [Recovered/Resolved]

NARRATIVE: CASE EVENT DATE: 20191108
